FAERS Safety Report 26203201 (Version 1)
Quarter: 2025Q4

REPORT INFORMATION
  Report Type: Report from Study
  Country: US (occurrence: US)
  Receive Date: 20251226
  Receipt Date: 20251226
  Transmission Date: 20260118
  Serious: Yes (Other)
  Sender: PFIZER
  Company Number: US-PFIZER INC-2020246683

PATIENT
  Age: 79 Year
  Sex: Female
  Weight: 99.79 kg

DRUGS (3)
  1. IBRANCE [Suspect]
     Active Substance: PALBOCICLIB
     Indication: Breast cancer stage IV
     Dosage: 125 MG, CYCLIC (DAYS 1-28)
     Route: 048
     Dates: start: 201701
  2. IBRANCE [Suspect]
     Active Substance: PALBOCICLIB
     Indication: Invasive ductal breast carcinoma
     Dosage: 100 MG, CYCLIC
     Route: 048
  3. FASLODEX [Concomitant]
     Active Substance: FULVESTRANT
     Dosage: 1 L, MONTHLY

REACTIONS (2)
  - Cytopenia [Unknown]
  - Anaemia [Unknown]
